FAERS Safety Report 8362553-0 (Version None)
Quarter: 2012Q2

REPORT INFORMATION
  Report Type: 
  Country: None (occurrence: None)
  Receive Date: 20120514
  Receipt Date: 20120502
  Transmission Date: 20120825
  Serious: Yes (Life-Threatening)
  Sender: FDA-Public Use
  Company Number: 2012SP024616

PATIENT
  Age: 51 Year
  Sex: Male

DRUGS (5)
  1. ASPIRIN [Concomitant]
  2. CLOPIDOGREL BISULFATE [Concomitant]
  3. EPTIFIBATIDE [Suspect]
     Indication: ACUTE CORONARY SYNDROME
     Dosage: 5.6 ML;	;IV
     Route: 042
     Dates: start: 20110929, end: 20110929
  4. EPTIFIBATIDE [Suspect]
     Indication: ACUTE CORONARY SYNDROME
     Dosage: 5.6 ML;	;IV
     Route: 042
     Dates: start: 20110923
  5. EPTIFIBATIDE [Suspect]
     Indication: ACUTE CORONARY SYNDROME
     Dosage: 5.6 ML;	;IV
     Route: 042
     Dates: start: 20110923

REACTIONS (3)
  - LEUKOPENIA [None]
  - CARDIAC ARREST [None]
  - CARDIOGENIC SHOCK [None]
